FAERS Safety Report 4929708-6 (Version None)
Quarter: 2006Q1

REPORT INFORMATION
  Report Type: 
  Country: None (occurrence: None)
  Receive Date: 20060224
  Receipt Date: 20060213
  Transmission Date: 20060701
  Serious: Yes (Hospitalization, Other)
  Sender: FDA-Public Use
  Company Number: US016164

PATIENT
  Age: 35 Year
  Sex: Female
  Weight: 87.9978 kg

DRUGS (5)
  1. TIAGABINE HCL [Suspect]
     Indication: GENERALISED ANXIETY DISORDER
     Dosage: 8 MG DAILY ORAL
     Route: 048
     Dates: start: 20050829, end: 20050925
  2. TIAGABINE HCL [Suspect]
     Indication: GENERALISED ANXIETY DISORDER
     Dosage: 4 MG DAILY ORAL
     Route: 048
     Dates: start: 20050926, end: 20051007
  3. TIAGABINE HCL [Suspect]
     Indication: GENERALISED ANXIETY DISORDER
     Dosage: 8 MG DAILY ORAL
     Route: 048
     Dates: start: 20050926, end: 20051007
  4. FERROUS SULFATE TAB [Concomitant]
  5. MAGNESIUM CITRATE [Concomitant]

REACTIONS (13)
  - AMNESIA [None]
  - BLOOD MAGNESIUM DECREASED [None]
  - COMA [None]
  - CONSTIPATION [None]
  - CONVULSION [None]
  - DISORIENTATION [None]
  - DIZZINESS [None]
  - FAECAL INCONTINENCE [None]
  - FALL [None]
  - HEAD INJURY [None]
  - SKIN LACERATION [None]
  - SYNCOPE [None]
  - SYNCOPE VASOVAGAL [None]
